FAERS Safety Report 8420446-4 (Version None)
Quarter: 2012Q2

REPORT INFORMATION
  Report Type: 
  Country: None (occurrence: None)
  Receive Date: 20120607
  Receipt Date: 20120601
  Transmission Date: 20120825
  Serious: Yes (Hospitalization)
  Sender: FDA-Public Use
  Company Number: UA-TEVA-332620ISR

PATIENT
  Sex: Female
  Weight: 39.5 kg

DRUGS (29)
  1. POTASSIUM MAGNESIUM ASPARTATE [Concomitant]
     Indication: HYPOKALAEMIA
     Route: 048
     Dates: start: 20120326, end: 20120328
  2. ALLOPURINOL [Concomitant]
     Indication: TUMOUR LYSIS SYNDROME
     Route: 048
     Dates: start: 20120319
  3. VINCRISTINE [Suspect]
     Dosage: 2 MG
     Dates: start: 20120326
  4. ONDANSETRON [Concomitant]
     Indication: NAUSEA
     Dosage: 8 MILLIGRAM;
     Route: 042
     Dates: start: 20120326, end: 20120326
  5. ONDANSETRON [Concomitant]
     Dosage: 24 MILLIGRAM;
     Route: 048
     Dates: start: 20120329, end: 20120401
  6. THIOTRIAZOLINUM 2.5% [Concomitant]
     Indication: CARDIOVASCULAR EVENT PROPHYLAXIS
     Dosage: 4 ML;
     Route: 042
     Dates: start: 20120326, end: 20120401
  7. OMEPRAZOLE [Concomitant]
     Indication: PROPHYLAXIS
     Dosage: 20 MILLIGRAM;
     Route: 042
     Dates: start: 20120329, end: 20120330
  8. PREDNISOLONE [Suspect]
     Dosage: 60 MG/DAY
     Dates: start: 20120326, end: 20120330
  9. CLEMASTINE [Concomitant]
     Indication: HYPERSENSITIVITY
     Dosage: 2 ML;
     Route: 042
     Dates: start: 20120326, end: 20120326
  10. TL011 [Suspect]
     Indication: DIFFUSE LARGE B-CELL LYMPHOMA
     Dosage: DOUBLE BLIND: TL011  IV VS. MABTHERA
     Route: 042
     Dates: start: 20120326
  11. ONDANSETRON [Concomitant]
     Dosage: 16 MILLIGRAM;
     Route: 042
     Dates: start: 20120328, end: 20120329
  12. RED BLOOD CELLS ADMINISTRATION [Concomitant]
     Indication: ANAEMIA
     Dosage: 180 ML;
     Route: 042
     Dates: start: 20120322, end: 20120322
  13. DIPHENHYDRAMINE HCL [Concomitant]
     Indication: PREMEDICATION
     Dosage: 5 ML;
     Route: 042
     Dates: start: 20120326, end: 20120326
  14. CALCIUM GLUCONATE [Concomitant]
     Indication: HYPERSENSITIVITY
     Dosage: 10 ML;
     Route: 042
     Dates: start: 20120326, end: 20120326
  15. ACYCLOVIR [Concomitant]
     Indication: PROPHYLAXIS
     Dosage: 1000 MILLIGRAM;
     Route: 048
     Dates: start: 20120402
  16. CYCLOPHOSPHAMIDE [Suspect]
     Dosage: 1050MG
     Dates: start: 20120326
  17. DOXORUBICIN HCL [Suspect]
     Dosage: 70 MG
     Dates: start: 20120326
  18. ONDANSETRON [Concomitant]
     Dosage: 8 MILLIGRAM;
     Route: 042
     Dates: start: 20120327, end: 20120327
  19. DIPHENHYDRAMINE HCL [Concomitant]
     Indication: HYPERSENSITIVITY
  20. DEXAMETHASONE [Concomitant]
     Indication: HYPERSENSITIVITY
     Dosage: 4 MILLIGRAM;
     Route: 042
     Dates: start: 20120326, end: 20120326
  21. DICLOFENAC [Concomitant]
     Indication: OSTEOCHONDROSIS
     Dosage: 3 ML;
     Route: 030
     Dates: start: 20120328, end: 20120328
  22. MABTHERA [Suspect]
     Indication: DIFFUSE LARGE B-CELL LYMPHOMA
     Dosage: DOUBLE BLIND: TL011 VS. MABTHERA
     Route: 042
     Dates: start: 20120326
  23. TRIMETAZIDINE DIHYDROCHLORIDE [Concomitant]
     Indication: MYOCARDIAL ISCHAEMIA
     Route: 048
     Dates: start: 20120326
  24. SOL. SIBASONI 0.5 [Concomitant]
     Indication: NAUSEA
     Dosage: 2 ML;
     Route: 030
     Dates: start: 20120328, end: 20120328
  25. ACETAMINOPHEN [Concomitant]
     Indication: PREMEDICATION
     Dosage: 1000 MILLIGRAM;
     Route: 048
     Dates: start: 20120326, end: 20120326
  26. COTRIM [Concomitant]
     Indication: PROPHYLAXIS
     Dosage: BID 3 TIMES PER WEEK
     Route: 048
     Dates: start: 20120402
  27. LANSOPRAZOLE [Concomitant]
     Indication: PROPHYLAXIS
     Dosage: 60 MILLIGRAM;
     Route: 048
     Dates: start: 20120326, end: 20120328
  28. POTASSIUM MAGNESIUM ASPARTATE [Concomitant]
     Dosage: 20 MILLIGRAM;
     Route: 042
     Dates: start: 20120329, end: 20120330
  29. TRIFAS [Concomitant]
     Indication: OEDEMA PERIPHERAL
     Dosage: 1 TAB QOD
     Route: 048
     Dates: start: 20120320, end: 20120322

REACTIONS (2)
  - TUMOUR LYSIS SYNDROME [None]
  - WEIGHT DECREASED [None]
